FAERS Safety Report 23652856 (Version 6)
Quarter: 2024Q4

REPORT INFORMATION
  Report Type: Spontaneous
  Country: US (occurrence: US)
  Receive Date: 20240320
  Receipt Date: 20241114
  Transmission Date: 20250115
  Serious: Yes (Other)
  Sender: NOVARTIS
  Company Number: US-002147023-NVSC2024US058070

PATIENT
  Age: 51 Year
  Sex: Male

DRUGS (1)
  1. KESIMPTA [Suspect]
     Active Substance: OFATUMUMAB
     Indication: Relapsing multiple sclerosis
     Dosage: UNK
     Route: 065

REACTIONS (6)
  - Multiple sclerosis pseudo relapse [Unknown]
  - Asthenia [Unknown]
  - Feeling abnormal [Unknown]
  - Nausea [Unknown]
  - Cystitis [Unknown]
  - Urinary tract infection [Unknown]
